FAERS Safety Report 4550051-1 (Version None)
Quarter: 2005Q1

REPORT INFORMATION
  Report Type: 
  Country: None (occurrence: None)
  Receive Date: 20050110
  Receipt Date: 20041228
  Transmission Date: 20050727
  Serious: Yes (Other)
  Sender: FDA-Public Use
  Company Number: 2004069564

PATIENT
  Age: 40 Year
  Sex: Female

DRUGS (2)
  1. ZOLOFT [Suspect]
     Indication: ANXIETY
     Dosage: 25 MG (25 MG,1 IN 1 D), ORAL
     Route: 048
     Dates: start: 20040920, end: 20040923
  2. ALPRAZOLAM [Concomitant]

REACTIONS (5)
  - ANGER [None]
  - ANHEDONIA [None]
  - FEELING ABNORMAL [None]
  - MOOD ALTERED [None]
  - PARALYSIS [None]
